FAERS Safety Report 19425418 (Version 1)
Quarter: 2021Q2

REPORT INFORMATION
  Report Type: Report from Study
  Country: PL (occurrence: PL)
  Receive Date: 20210616
  Receipt Date: 20210616
  Transmission Date: 20210717
  Serious: Yes (Other)
  Sender: FDA-Public Use
  Company Number: NVSC2021PL131886

PATIENT

DRUGS (1)
  1. EUCREAS [Suspect]
     Active Substance: METFORMIN HYDROCHLORIDE\VILDAGLIPTIN
     Indication: PRODUCT USED FOR UNKNOWN INDICATION
     Dosage: UNK
     Route: 065

REACTIONS (16)
  - Sleep apnoea syndrome [Unknown]
  - Fatigue [Unknown]
  - Alcoholic liver disease [Unknown]
  - Hyperglycaemia [Unknown]
  - Transient ischaemic attack [Unknown]
  - Myocardial infarction [Unknown]
  - Obesity [Unknown]
  - Cerebrovascular accident [Unknown]
  - Hypoaesthesia [Unknown]
  - Paraesthesia [Unknown]
  - Neoplasm malignant [Unknown]
  - Anxiety [Unknown]
  - Thirst [Unknown]
  - Impaired healing [Unknown]
  - Lethargy [Unknown]
  - Hypoglycaemia [Unknown]
